FAERS Safety Report 9461766 (Version 2)
Quarter: 2013Q4

REPORT INFORMATION
  Report Type: Spontaneous
  Country: US (occurrence: US)
  Receive Date: 20130816
  Receipt Date: 20131016
  Transmission Date: 20140711
  Serious: Yes (Other)
  Sender: FDA-Public Use
  Company Number: US-VIROPHARMA INCORPORATED-20130806CINRY4753

PATIENT
  Sex: Female
  Weight: 52.66 kg

DRUGS (5)
  1. CINRYZE (C1 ESTERASE INHIBITOR (HUMAN)) [Suspect]
     Indication: HEREDITARY ANGIOEDEMA
  2. CINRYZE (C1 ESTERASE INHIBITOR (HUMAN)) [Suspect]
     Indication: PROPHYLAXIS
     Dates: start: 2012
  3. RITUXAN [Suspect]
     Indication: NON-HODGKIN^S LYMPHOMA RECURRENT
     Dosage: UNKNOWN
     Route: 065
     Dates: start: 2013
  4. BENDAMUSTINE [Suspect]
     Indication: NON-HODGKIN^S LYMPHOMA RECURRENT
     Dosage: UNKNOWN
     Route: 065
     Dates: start: 2013
  5. FIRAZYR [Concomitant]
     Indication: HEREDITARY ANGIOEDEMA
     Dosage: UNKNOWN
     Route: 065

REACTIONS (6)
  - Non-Hodgkin^s lymphoma recurrent [Not Recovered/Not Resolved]
  - Inappropriate schedule of drug administration [Not Recovered/Not Resolved]
  - Neck pain [Unknown]
  - Ear pain [Unknown]
  - Hereditary angioedema [Not Recovered/Not Resolved]
  - Sinusitis [Not Recovered/Not Resolved]
